FAERS Safety Report 7841341-5 (Version None)
Quarter: 2011Q4

REPORT INFORMATION
  Report Type: 
  Country: None (occurrence: None)
  Receive Date: 20111025
  Receipt Date: 20111013
  Transmission Date: 20120403
  Serious: Yes (Hospitalization)
  Sender: FDA-Public Use
  Company Number: AU-JNJFOC-20111006660

PATIENT
  Sex: Female

DRUGS (9)
  1. PANTOPRAZOLE [Concomitant]
     Route: 065
  2. LOPERAMIDE HCL [Concomitant]
     Route: 065
  3. ENDEP [Concomitant]
     Route: 065
  4. WARFARIN SODIUM [Concomitant]
     Route: 065
  5. IMURAN [Concomitant]
     Route: 065
  6. TRIMETHOPRIM [Concomitant]
     Route: 065
  7. ERGOCALCIFEROL [Concomitant]
     Route: 065
  8. REMICADE [Suspect]
     Indication: CROHN'S DISEASE
     Route: 042
  9. VALPROATE SODIUM [Concomitant]
     Route: 065

REACTIONS (4)
  - IMMUNE SYSTEM DISORDER [None]
  - KIDNEY INFECTION [None]
  - DYSPNOEA [None]
  - URINARY TRACT INFECTION [None]
